FAERS Safety Report 5139629-4 (Version None)
Quarter: 2006Q4

REPORT INFORMATION
  Report Type: 
  Country: None (occurrence: None)
  Receive Date: 20061023
  Receipt Date: 20061009
  Transmission Date: 20070319
  Serious: Yes (Hospitalization)
  Sender: FDA-Public Use
  Company Number: US200610001630

PATIENT
  Age: 83 Year
  Sex: Female

DRUGS (2)
  1. FORTEO [Suspect]
  2. FORTEO [Concomitant]

REACTIONS (7)
  - ANAESTHETIC COMPLICATION [None]
  - BONE DENSITY DECREASED [None]
  - DELAYED RECOVERY FROM ANAESTHESIA [None]
  - JOINT SWELLING [None]
  - MYASTHENIA GRAVIS [None]
  - NECK INJURY [None]
  - SINUS DISORDER [None]
